FAERS Safety Report 16003825 (Version 1)
Quarter: 2019Q1

REPORT INFORMATION
  Report Type: Spontaneous
  Country: PT (occurrence: PT)
  Receive Date: 20190226
  Receipt Date: 20190226
  Transmission Date: 20190418
  Serious: Yes (Death, Other)
  Sender: FDA-Public Use
  Company Number: PT-ACCORD-104321

PATIENT
  Age: 35 Year
  Sex: Male

DRUGS (2)
  1. TACROLIMUS. [Suspect]
     Active Substance: TACROLIMUS
     Indication: LUNG TRANSPLANT
     Dosage: 4.5 MG, BID
     Route: 065
  2. EVEROLIMUS. [Suspect]
     Active Substance: EVEROLIMUS
     Indication: LUNG TRANSPLANT
     Dosage: 0.5 MG, BID
     Route: 065

REACTIONS (4)
  - Abdominal sepsis [Fatal]
  - Kaposi^s sarcoma [Fatal]
  - Herpes virus infection [Fatal]
  - Anaemia [Unknown]
